FAERS Safety Report 5306196-1 (Version None)
Quarter: 2007Q2

REPORT INFORMATION
  Report Type: 
  Country: None (occurrence: None)
  Receive Date: 20070416
  Receipt Date: 20070403
  Transmission Date: 20071010
  Serious: Yes (Life-Threatening, Hospitalization)
  Sender: FDA-Public Use
  Company Number: DSA_29676_2007

PATIENT
  Age: 29 Year
  Sex: Female

DRUGS (2)
  1. LORAZEPAM [Suspect]
     Dosage: 8 MG SL
     Dates: start: 20070402, end: 20070402
  2. DOMINAL [Suspect]
     Dosage: 2000 MG ONCE PO
     Route: 048
     Dates: start: 20070402, end: 20070402

REACTIONS (3)
  - OVERDOSE [None]
  - SINUS TACHYCARDIA [None]
  - SUICIDE ATTEMPT [None]
